FAERS Safety Report 7789728-3 (Version None)
Quarter: 2011Q3

REPORT INFORMATION
  Report Type: 
  Country: None (occurrence: None)
  Receive Date: 20110930
  Receipt Date: 20110331
  Transmission Date: 20111222
  Serious: No
  Sender: FDA-Public Use
  Company Number: US-ASTRAZENECA-2011SE18496

PATIENT
  Age: 59 Year
  Sex: Female

DRUGS (2)
  1. ANASTROZOLE [Suspect]
     Route: 048
  2. CELEXA [Concomitant]

REACTIONS (3)
  - DEPRESSION [None]
  - CHEST DISCOMFORT [None]
  - ANXIETY [None]
